FAERS Safety Report 6692428-4 (Version None)
Quarter: 2010Q2

REPORT INFORMATION
  Report Type: 
  Country: None (occurrence: None)
  Receive Date: 20100422
  Receipt Date: 20100416
  Transmission Date: 20101027
  Serious: No
  Sender: FDA-Public Use
  Company Number: US-ROXANE LABORATORIES, INC.-2010-RO-00435RO

PATIENT
  Sex: Male

DRUGS (2)
  1. AZATHIOPRINE [Suspect]
     Indication: MYASTHENIA GRAVIS
     Dosage: 150 MG
     Route: 048
     Dates: start: 20010201
  2. AZATHIOPRINE [Suspect]
     Dosage: 200 MG
     Route: 048

REACTIONS (2)
  - ASTHENIA [None]
  - DRUG INEFFECTIVE [None]
